FAERS Safety Report 5425999-6 (Version None)
Quarter: 2007Q3

REPORT INFORMATION
  Report Type: 
  Country: None (occurrence: None)
  Receive Date: 20070827
  Receipt Date: 20070822
  Transmission Date: 20080115
  Serious: Yes (Other)
  Sender: FDA-Public Use
  Company Number: FR-BRISTOL-MYERS SQUIBB COMPANY-13888458

PATIENT
  Age: 84 Year
  Sex: Female

DRUGS (3)
  1. COAPROVEL TABS 300MG/12.5MG [Suspect]
     Indication: HYPERTENSION
     Route: 048
     Dates: end: 20070822
  2. APROVEL TABS 150 MG [Suspect]
     Indication: HYPERTENSION
     Route: 048
  3. ALDACTONE [Suspect]
     Indication: HYPERTENSION
     Route: 048
     Dates: end: 20070822

REACTIONS (2)
  - HYPERKALAEMIA [None]
  - HYPONATRAEMIA [None]
